FAERS Safety Report 8457753-5 (Version None)
Quarter: 2012Q2

REPORT INFORMATION
  Report Type: 
  Country: None (occurrence: None)
  Receive Date: 20120618
  Receipt Date: 20120618
  Transmission Date: 20120825
  Serious: Yes (Life-Threatening, Disabling, Other)
  Sender: FDA-Public Use
  Company Number: None

PATIENT
  Age: 29 Year
  Sex: Male
  Weight: 63.5036 kg

DRUGS (1)
  1. CIPRO [Suspect]
     Indication: GASTROINTESTINAL INFECTION
     Dosage: 500MG 2X/DAY PO
     Route: 048
     Dates: start: 20110520, end: 20110527

REACTIONS (19)
  - VITREOUS FLOATERS [None]
  - MUSCLE SPASMS [None]
  - MUSCLE TWITCHING [None]
  - MUSCLE ATROPHY [None]
  - PHOTOPHOBIA [None]
  - MUSCULAR WEAKNESS [None]
  - TACHYCARDIA [None]
  - FOOD INTOLERANCE [None]
  - ARTHRALGIA [None]
  - INSOMNIA [None]
  - NIGHT BLINDNESS [None]
  - FATIGUE [None]
  - TEMPERATURE INTOLERANCE [None]
  - ABDOMINAL PAIN [None]
  - COGNITIVE DISORDER [None]
  - VISION BLURRED [None]
  - DISTURBANCE IN ATTENTION [None]
  - MEMORY IMPAIRMENT [None]
  - ALCOHOL INTOLERANCE [None]
